FAERS Safety Report 23343212 (Version 1)
Quarter: 2023Q4

REPORT INFORMATION
  Report Type: Spontaneous
  Country: US (occurrence: None)
  Receive Date: 20231227
  Receipt Date: 20231227
  Transmission Date: 20240110
  Serious: Yes (Hospitalization, Other)
  Sender: FDA-Public Use
  Company Number: 2018SF13776

PATIENT
  Sex: Male
  Weight: 113.4 kg

DRUGS (7)
  1. OMEPRAZOLE [Suspect]
     Active Substance: OMEPRAZOLE
     Dates: start: 20100519
  2. PROTONIX [Suspect]
     Active Substance: PANTOPRAZOLE SODIUM
     Dates: start: 2003, end: 2014
  3. PROTONIX [Suspect]
     Active Substance: PANTOPRAZOLE SODIUM
     Dates: start: 20090103, end: 20090129
  4. GABAPENTIN [Concomitant]
     Active Substance: GABAPENTIN
     Indication: Gastrooesophageal reflux disease
     Dates: start: 2018
  5. PALIPERIDONE [Concomitant]
     Active Substance: PALIPERIDONE
     Indication: Gastrooesophageal reflux disease
     Dates: start: 2018
  6. HYDROXYZINE [Concomitant]
     Active Substance: HYDROXYZINE HYDROCHLORIDE
     Indication: Gastrooesophageal reflux disease
     Dates: start: 2018
  7. BENZTROPINE [Concomitant]
     Active Substance: BENZTROPINE
     Indication: Gastrooesophageal reflux disease
     Dates: start: 2018

REACTIONS (2)
  - Chronic kidney disease [Not Recovered/Not Resolved]
  - Renal disorder [Unknown]
